FAERS Safety Report 5489515-5 (Version None)
Quarter: 2007Q4

REPORT INFORMATION
  Report Type: 
  Country: None (occurrence: None)
  Receive Date: 20071016
  Receipt Date: 20071016
  Transmission Date: 20080405
  Serious: Yes (Hospitalization)
  Sender: FDA-Public Use
  Company Number: None

PATIENT
  Sex: Female
  Weight: 57.8 kg

DRUGS (4)
  1. CISPLATIN [Suspect]
     Dosage: 83 MG
  2. DOXORUBICIN HYDROCHLORIDE [Suspect]
     Dosage: 75 MG
  3. G-CSF (FILGRASTIM, AMGEN) [Suspect]
     Dosage: 6 MG
  4. TAXOL [Suspect]
     Dosage: 266 MG

REACTIONS (11)
  - ASTHENIA [None]
  - BLOOD MAGNESIUM ABNORMAL [None]
  - BLOOD POTASSIUM ABNORMAL [None]
  - CULTURE URINE POSITIVE [None]
  - DIZZINESS [None]
  - DYSPNOEA [None]
  - ESCHERICHIA INFECTION [None]
  - HYPOVOLAEMIA [None]
  - MUCOSAL DRYNESS [None]
  - NEUTROPHIL COUNT ABNORMAL [None]
  - POLLAKIURIA [None]
